FAERS Safety Report 15025354 (Version 1)
Quarter: 2018Q2

REPORT INFORMATION
  Report Type: Spontaneous
  Country: US (occurrence: US)
  Receive Date: 20180618
  Receipt Date: 20180618
  Transmission Date: 20180711
  Serious: No
  Sender: FDA-Public Use
  Company Number: US-GILEAD-2018-0345429

PATIENT
  Age: 78 Year
  Sex: Male

DRUGS (2)
  1. RANEXA [Suspect]
     Active Substance: RANOLAZINE
     Indication: ANGINA PECTORIS
     Dosage: 1 UNK, UNK
     Route: 048
     Dates: start: 201806, end: 201806
  2. RANEXA [Suspect]
     Active Substance: RANOLAZINE
     Dosage: 1 UNK, UNK
     Route: 048
     Dates: start: 201806, end: 201806

REACTIONS (1)
  - Visual impairment [Not Recovered/Not Resolved]

NARRATIVE: CASE EVENT DATE: 20180606
